FAERS Safety Report 10259863 (Version 1)
Quarter: 2014Q2

REPORT INFORMATION
  Report Type: Spontaneous
  Country: US (occurrence: US)
  Receive Date: 20140625
  Receipt Date: 20140625
  Transmission Date: 20141212
  Serious: Yes (Other)
  Sender: FDA-Public Use
  Company Number: US-GLAXOSMITHKLINE-A1078451A

PATIENT
  Age: 63 Year
  Sex: Male
  Weight: 55.5 kg

DRUGS (16)
  1. VENTOLIN [Suspect]
     Indication: WHEEZING
     Dosage: 2PUFF AS REQUIRED
     Route: 055
     Dates: start: 20120605
  2. NASONEX [Suspect]
     Indication: MULTIPLE ALLERGIES
     Dosage: 4SPR PER DAY
     Route: 045
  3. SINGULAIR [Suspect]
     Indication: MULTIPLE ALLERGIES
     Dosage: 10MG AT NIGHT
     Route: 048
  4. PRILOSEC [Suspect]
     Indication: PRODUCT USED FOR UNKNOWN INDICATION
     Dosage: 40MG IN THE MORNING
     Route: 048
  5. ZANTAC [Suspect]
     Indication: ILL-DEFINED DISORDER
     Dosage: 300MG AT NIGHT
     Route: 048
  6. ASPIRIN EC [Suspect]
     Indication: PRODUCT USED FOR UNKNOWN INDICATION
     Dosage: 81MG PER DAY
     Route: 048
  7. XYZAL [Suspect]
     Indication: MULTIPLE ALLERGIES
     Dosage: 5MG AT NIGHT
     Route: 048
  8. TIAZAC [Suspect]
     Indication: PRODUCT USED FOR UNKNOWN INDICATION
     Dosage: 120MG PER DAY
     Route: 048
  9. XOLAIR [Concomitant]
     Indication: ASTHMA
     Dosage: 150MG EVERY 28 DAYS
     Route: 058
  10. DULERA [Concomitant]
     Indication: ASTHMA
  11. EPIPEN [Concomitant]
  12. VYTORIN [Concomitant]
  13. PATANASE [Concomitant]
     Indication: MULTIPLE ALLERGIES
  14. PATADAY [Concomitant]
  15. PALGIC [Concomitant]
  16. ALLEGRA [Concomitant]
     Indication: MULTIPLE ALLERGIES

REACTIONS (12)
  - Skin cancer [Unknown]
  - Atrial fibrillation [Unknown]
  - Asthma [Unknown]
  - Cough [Recovering/Resolving]
  - Hypertension [Unknown]
  - Hypercholesterolaemia [Unknown]
  - Terminal insomnia [Unknown]
  - Conjunctivitis allergic [Unknown]
  - Dyspnoea [Unknown]
  - Ill-defined disorder [Unknown]
  - Drug ineffective [Unknown]
  - Drug dose omission [Unknown]
